FAERS Safety Report 4385068-3 (Version None)
Quarter: 2004Q2

REPORT INFORMATION
  Report Type: 
  Country: None (occurrence: None)
  Receive Date: 20040625
  Receipt Date: 20040617
  Transmission Date: 20050107
  Serious: Yes (Hospitalization)
  Sender: FDA-Public Use
  Company Number: FR-BRISTOL-MYERS SQUIBB COMPANY-12618807

PATIENT
  Age: 84 Year
  Sex: Female

DRUGS (6)
  1. ELISOR [Suspect]
     Route: 048
  2. FONZYLANE [Suspect]
     Indication: ARTERIOPATHIC DISEASE
     Route: 048
     Dates: start: 20040401
  3. PLAVIX [Suspect]
     Indication: ARTERIOPATHIC DISEASE
     Route: 048
     Dates: start: 20040401
  4. PRITOR [Suspect]
     Route: 048
  5. NOCTRAN [Suspect]
     Route: 048
  6. CORTANCYL [Suspect]

REACTIONS (1)
  - PANCYTOPENIA [None]
